FAERS Safety Report 23879412 (Version 1)
Quarter: 2024Q2

REPORT INFORMATION
  Report Type: Spontaneous
  Country: US (occurrence: US)
  Receive Date: 20240521
  Receipt Date: 20240521
  Transmission Date: 20240716
  Serious: No
  Sender: FDA-Public Use
  Company Number: US-ABBVIE-5763653

PATIENT
  Sex: Female

DRUGS (4)
  1. SKYRIZI [Suspect]
     Active Substance: RISANKIZUMAB-RZAA
     Indication: Crohn^s disease
     Dosage: FORM STRENGTH: 360 MILLIGRAM
     Route: 058
  2. SKYRIZI [Suspect]
     Active Substance: RISANKIZUMAB-RZAA
     Dosage: FORM STRENGTH: 600 MILLIGRAM, WEEK 0, LAST ADMIN DATE- 2024
     Route: 042
     Dates: start: 20240308
  3. SKYRIZI [Suspect]
     Active Substance: RISANKIZUMAB-RZAA
     Dosage: FORM STRENGTH: 600 MILLIGRAM, WEEK 4, LAST ADMIN DATE- 2024
     Route: 042
     Dates: start: 20240405
  4. SKYRIZI [Suspect]
     Active Substance: RISANKIZUMAB-RZAA
     Dosage: FORM STRENGTH: 600 MILLIGRAM, WEEK 8
     Route: 042
     Dates: start: 202405

REACTIONS (4)
  - Intra-uterine contraceptive device removal [Unknown]
  - Procedural pain [Unknown]
  - Device issue [Not Recovered/Not Resolved]
  - Product preparation error [Not Recovered/Not Resolved]
